FAERS Safety Report 16561015 (Version 1)
Quarter: 2019Q3

REPORT INFORMATION
  Report Type: Spontaneous
  Country: US (occurrence: US)
  Receive Date: 20190711
  Receipt Date: 20190711
  Transmission Date: 20191004
  Serious: Yes (Death)
  Sender: FDA-Public Use
  Company Number: US-FRESENIUS KABI-FK201907528

PATIENT
  Age: 30 Year
  Sex: Male

DRUGS (1)
  1. FENTANYL (MANUFACTURER UNKNOWN) [Suspect]
     Active Substance: FENTANYL
     Indication: PRODUCT USED FOR UNKNOWN INDICATION
     Dosage: UNKNOWN
     Route: 045

REACTIONS (9)
  - Multiple organ dysfunction syndrome [Fatal]
  - Rhabdomyolysis [Fatal]
  - Systemic inflammatory response syndrome [Fatal]
  - Intentional product use issue [Fatal]
  - Brain death [Fatal]
  - Hypotension [Fatal]
  - Acute kidney injury [Fatal]
  - Muscle rigidity [Fatal]
  - Overdose [Fatal]
